FAERS Safety Report 4417613-3 (Version None)
Quarter: 2004Q3

REPORT INFORMATION
  Report Type: 
  Country: None (occurrence: None)
  Receive Date: 20040803
  Receipt Date: 20040712
  Transmission Date: 20050211
  Serious: Yes (Other)
  Sender: FDA-Public Use
  Company Number: 2004-DE-04015GL

PATIENT
  Age: 73 Year
  Sex: Male

DRUGS (5)
  1. TELMISARTAN (TELMISARTAN) [Suspect]
     Indication: BLOOD PRESSURE INCREASED
     Dosage: 40 MG PO
     Route: 048
     Dates: start: 20031101, end: 20040501
  2. WARFARIN SODIUM [Concomitant]
  3. DIGOXIN [Concomitant]
  4. SIMVASTATIN [Concomitant]
  5. SILDENAFIL CITRATE (SILDENAFIL CITRATE_ [Concomitant]

REACTIONS (2)
  - DIARRHOEA [None]
  - RECTAL HAEMORRHAGE [None]
